FAERS Safety Report 6616842-8 (Version None)
Quarter: 2010Q1

REPORT INFORMATION
  Report Type: 
  Country: None (occurrence: None)
  Receive Date: 20100301
  Receipt Date: 20100218
  Transmission Date: 20100710
  Serious: Yes (Other)
  Sender: FDA-Public Use
  Company Number: 512816

PATIENT
  Sex: Male

DRUGS (3)
  1. DACARBAZINE [Suspect]
     Indication: MALIGNANT MELANOMA
  2. (MONOCLONAL ANTIBODIES) [Concomitant]
  3. INTERFERON [Concomitant]

REACTIONS (5)
  - ACUTE MYELOID LEUKAEMIA [None]
  - ANAEMIA [None]
  - DYSPNOEA [None]
  - MALIGNANT NEOPLASM PROGRESSION [None]
  - THROMBOCYTOPENIA [None]
